FAERS Safety Report 14124134 (Version 4)
Quarter: 2018Q1

REPORT INFORMATION
  Report Type: Spontaneous
  Country: DE (occurrence: DE)
  Receive Date: 20171025
  Receipt Date: 20180307
  Transmission Date: 20180508
  Serious: Yes (Hospitalization, Other)
  Sender: FDA-Public Use
  Company Number: DE-PFIZER INC-2017453733

PATIENT
  Age: 77 Year
  Sex: Female

DRUGS (3)
  1. XALATAN [Suspect]
     Active Substance: LATANOPROST
     Indication: EXFOLIATION GLAUCOMA
     Dosage: 1 DROP, ONCE DAILY, 1 DROP IN ONE EYE IN THE EVENING
     Dates: end: 20171009
  2. PROTHYRID [Concomitant]
     Active Substance: LEVOTHYROXINE SODIUM
     Dosage: 0.5 DF, DAILY
     Dates: start: 1997
  3. JODID [Concomitant]
     Active Substance: IODINE
     Dosage: UNK UNK, ONCE DAILY
     Dates: start: 1997

REACTIONS (11)
  - Neuromyopathy [Recovering/Resolving]
  - Hypoaesthesia [Recovering/Resolving]
  - Asthenia [Recovering/Resolving]
  - Angina pectoris [Recovering/Resolving]
  - Yawning [Recovering/Resolving]
  - Gait inability [Recovering/Resolving]
  - Movement disorder [Recovering/Resolving]
  - Hypertension [Unknown]
  - Respiration abnormal [Recovering/Resolving]
  - Dermatitis [Recovering/Resolving]
  - Joint injury [Unknown]

NARRATIVE: CASE EVENT DATE: 2016
